FAERS Safety Report 6910611-7 (Version None)
Quarter: 2010Q3

REPORT INFORMATION
  Report Type: 
  Country: None (occurrence: None)
  Receive Date: 20100806
  Receipt Date: 20070701
  Transmission Date: 20110219
  Serious: Yes (Other)
  Sender: FDA-Public Use
  Company Number: US-BAYER-201031302GPV

PATIENT
  Age: 75 Year
  Sex: Male

DRUGS (9)
  1. SORAFENIB [Suspect]
     Indication: METASTASES TO LUNG
     Dosage: UNIT DOSE: 400 MG
     Dates: start: 20071201, end: 20080611
  2. AMLODIPINE [Concomitant]
  3. CLONIDINE [Concomitant]
  4. METOPROLOL [Concomitant]
  5. IRBESARTAN [Concomitant]
  6. SITAGLIPTIN [Concomitant]
  7. METFORMIN HCL [Concomitant]
  8. LEVOTHYROXINE [Concomitant]
     Dates: start: 20080402
  9. CLOPIDOGREL [Concomitant]

REACTIONS (1)
  - LEUKOCYTOCLASTIC VASCULITIS [None]
